FAERS Safety Report 15260116 (Version 2)
Quarter: 2018Q4

REPORT INFORMATION
  Report Type: Spontaneous
  Country: CN (occurrence: CN)
  Receive Date: 20180809
  Receipt Date: 20181012
  Transmission Date: 20190204
  Serious: Yes (Other)
  Sender: FDA-Public Use
  Company Number: US-ASTRAZENECA-2018SF00556

PATIENT
  Age: 17896 Day
  Sex: Male
  Weight: 77 kg

DRUGS (1)
  1. RHINOCORT [Suspect]
     Active Substance: BUDESONIDE
     Indication: RHINITIS ALLERGIC
     Dosage: 32 MICROGRAM STRENGTH ONE SPRAY TO THE NASAL CAVITY, TWICE A DAY
     Route: 055
     Dates: start: 20180529, end: 20180530

REACTIONS (2)
  - Incorrect dose administered [Unknown]
  - Hereditary angioedema [Recovering/Resolving]

NARRATIVE: CASE EVENT DATE: 20180529
